FAERS Safety Report 22226669 (Version 3)
Quarter: 2024Q1

REPORT INFORMATION
  Report Type: Report from Study
  Country: CH (occurrence: CH)
  Receive Date: 20230419
  Receipt Date: 20240327
  Transmission Date: 20240410
  Serious: Yes (Hospitalization, Other)
  Sender: FDA-Public Use
  Company Number: CH-ABBVIE-4698639

PATIENT
  Age: 69 Year
  Sex: Female

DRUGS (1)
  1. UPADACITINIB [Suspect]
     Active Substance: UPADACITINIB
     Indication: Rheumatoid arthritis
     Route: 048

REACTIONS (3)
  - Influenza [Recovered/Resolved]
  - Acute respiratory failure [Unknown]
  - Lung infiltration [Unknown]

NARRATIVE: CASE EVENT DATE: 20221230
